FAERS Safety Report 21661611 (Version 4)
Quarter: 2023Q1

REPORT INFORMATION
  Report Type: Spontaneous
  Country: US (occurrence: US)
  Receive Date: 20221130
  Receipt Date: 20230116
  Transmission Date: 20230418
  Serious: Yes (Hospitalization, Other)
  Sender: FDA-Public Use
  Company Number: US-ASTELLAS-2022US042135

PATIENT
  Age: 65 Year
  Sex: Male

DRUGS (2)
  1. ENFORTUMAB VEDOTIN [Suspect]
     Active Substance: ENFORTUMAB VEDOTIN
     Indication: Bladder cancer
     Dosage: 1 MG/KG, ONCE WEEKLY  (Q1WK)
     Route: 042
     Dates: start: 20220304, end: 20221115
  2. SACITUZUMAB GOVITECAN-HZIY [Suspect]
     Active Substance: SACITUZUMAB GOVITECAN-HZIY
     Indication: Bladder cancer
     Dosage: 6 MG/KG, ONCE WEEKLY (Q1WK)
     Route: 042
     Dates: start: 20220304, end: 20221115

REACTIONS (3)
  - Pelvic abscess [Not Recovered/Not Resolved]
  - Small intestinal obstruction [Recovered/Resolved]
  - Incorrect dose administered [Unknown]

NARRATIVE: CASE EVENT DATE: 20220304
